FAERS Safety Report 6238656-3 (Version None)
Quarter: 2009Q2

REPORT INFORMATION
  Report Type: 
  Country: None (occurrence: None)
  Receive Date: 20090617
  Receipt Date: 20090617
  Transmission Date: 20091009
  Serious: Yes (Other)
  Sender: FDA-Public Use
  Company Number: None

PATIENT
  Age: 58 Year
  Sex: Female
  Weight: 61.2356 kg

DRUGS (2)
  1. LAMISIL [Suspect]
  2. TERBINAFINE HCL [Concomitant]

REACTIONS (1)
  - AGEUSIA [None]
